FAERS Safety Report 12162252 (Version 1)
Quarter: 2016Q1

REPORT INFORMATION
  Report Type: Spontaneous
  Country: FR (occurrence: FR)
  Receive Date: 20160309
  Receipt Date: 20160309
  Transmission Date: 20160526
  Serious: Yes (Hospitalization, Other)
  Sender: FDA-Public Use
  Company Number: FR-BRISTOL-MYERS SQUIBB COMPANY-BMS-2016-015823

PATIENT
  Age: 72 Year
  Sex: Male

DRUGS (1)
  1. OPDIVO [Suspect]
     Active Substance: NIVOLUMAB
     Indication: LUNG ADENOCARCINOMA
     Dosage: 290 MG, QCYCLE
     Route: 042
     Dates: start: 20160111, end: 20160125

REACTIONS (6)
  - Cardiac failure [Unknown]
  - Myalgia [Not Recovered/Not Resolved]
  - Troponin increased [Recovering/Resolving]
  - Electrocardiogram abnormal [Unknown]
  - Polymyositis [Not Recovered/Not Resolved]
  - Blood creatine phosphokinase increased [Recovering/Resolving]

NARRATIVE: CASE EVENT DATE: 20160129
